FAERS Safety Report 25353383 (Version 1)
Quarter: 2025Q2

REPORT INFORMATION
  Report Type: Spontaneous
  Country: US (occurrence: US)
  Receive Date: 20250523
  Receipt Date: 20250523
  Transmission Date: 20250716
  Serious: No
  Sender: INCYTE
  Company Number: US-EVENT-002802

PATIENT

DRUGS (2)
  1. ZYNYZ [Suspect]
     Active Substance: RETIFANLIMAB-DLWR
     Indication: Anal cancer metastatic
     Route: 065
  2. ZYNYZ [Suspect]
     Active Substance: RETIFANLIMAB-DLWR
     Indication: Neuroendocrine carcinoma of the skin

REACTIONS (1)
  - Off label use [Unknown]
